FAERS Safety Report 5577380-7 (Version None)
Quarter: 2007Q4

REPORT INFORMATION
  Report Type: 
  Country: None (occurrence: None)
  Receive Date: 20071228
  Receipt Date: 20071219
  Transmission Date: 20080405
  Serious: Yes (Other)
  Sender: FDA-Public Use
  Company Number: FR-PFIZER INC-2007097073

PATIENT
  Sex: Female

DRUGS (1)
  1. DOSTINEX [Suspect]
     Dates: start: 20070301, end: 20070901

REACTIONS (3)
  - GALACTORRHOEA [None]
  - GASTRITIS [None]
  - HEPATITIS [None]
